FAERS Safety Report 7265658-0 (Version None)
Quarter: 2011Q1

REPORT INFORMATION
  Report Type: 
  Country: None (occurrence: None)
  Receive Date: 20110120
  Receipt Date: 20110112
  Transmission Date: 20110831
  Serious: Yes (Hospitalization)
  Sender: FDA-Public Use
  Company Number: WAES 1008USA03878

PATIENT

DRUGS (14)
  1. GASLON N [Concomitant]
  2. CAP VORINOSTAT [Suspect]
     Indication: B-CELL LYMPHOMA
     Dosage: 200 MG/BID
     Route: 048
     Dates: start: 20090731, end: 20090731
  3. CAP VORINOSTAT [Suspect]
     Indication: B-CELL LYMPHOMA
     Dosage: 200 MG/BID
     Route: 048
     Dates: start: 20100107, end: 20100120
  4. CAP VORINOSTAT [Suspect]
     Indication: B-CELL LYMPHOMA
     Dosage: 200 MG/BID
     Route: 048
     Dates: start: 20090728, end: 20090730
  5. CAP VORINOSTAT [Suspect]
     Indication: B-CELL LYMPHOMA
     Dosage: 200 MG/BID
     Route: 048
     Dates: start: 20091217, end: 20091225
  6. CAP VORINOSTAT [Suspect]
     Indication: B-CELL LYMPHOMA
     Dosage: 200 MG/BID
     Route: 048
     Dates: start: 20091006, end: 20091019
  7. CAP VORINOSTAT [Suspect]
     Indication: B-CELL LYMPHOMA
     Dosage: 200 MG/BID
     Route: 048
     Dates: start: 20091226, end: 20091226
  8. CAP VORINOSTAT [Suspect]
     Indication: B-CELL LYMPHOMA
     Dosage: 200 MG/BID
     Route: 048
     Dates: start: 20091103, end: 20091116
  9. CAP VORINOSTAT [Suspect]
     Indication: B-CELL LYMPHOMA
     Dosage: 200 MG/BID
     Route: 048
     Dates: start: 20091227, end: 20091230
  10. CAP VORINOSTAT [Suspect]
     Indication: B-CELL LYMPHOMA
     Dosage: 200 MG/BID
     Route: 048
     Dates: start: 20090901, end: 20090914
  11. CAP VORINOSTAT [Suspect]
     Indication: B-CELL LYMPHOMA
     Dosage: 200 MG/BID
     Route: 048
     Dates: start: 20091126, end: 20091209
  12. CAP VORINOSTAT [Suspect]
     Indication: B-CELL LYMPHOMA
     Dosage: 200 MG/BID
     Route: 048
     Dates: start: 20090728, end: 20090730
  13. CAP VORINOSTAT [Suspect]
     Indication: B-CELL LYMPHOMA
     Dosage: 200 MG/BID
     Route: 048
     Dates: start: 20090802, end: 20090810
  14. CAP VORINOSTAT [Suspect]
     Indication: B-CELL LYMPHOMA
     Dosage: 200 MG/BID
     Route: 048
     Dates: start: 20100128, end: 20100210

REACTIONS (3)
  - THROMBOCYTOPENIA [None]
  - BREAST CANCER FEMALE [None]
  - MYOSITIS [None]
